FAERS Safety Report 7333557-1 (Version None)
Quarter: 2011Q1

REPORT INFORMATION
  Report Type: 
  Country: None (occurrence: None)
  Receive Date: 20110304
  Receipt Date: 20110303
  Transmission Date: 20110831
  Serious: Yes (Death, Hospitalization)
  Sender: FDA-Public Use
  Company Number: US-B.I. PHARMACEUTICALS,INC./RIDGEFIELD-2011-BP-06132BP

PATIENT
  Age: 88 Year
  Sex: Female

DRUGS (6)
  1. COZAAR [Concomitant]
  2. METFORMIN HCL [Concomitant]
  3. PRADAXA [Suspect]
     Indication: ATRIAL FIBRILLATION
     Dosage: 300 MG
     Route: 048
     Dates: start: 20101230
  4. PLAVIX [Concomitant]
  5. ISOSORBIDE DINITRATE [Concomitant]
  6. ESTRACE [Concomitant]

REACTIONS (2)
  - DEATH [None]
  - HAEMATOMA [None]
